FAERS Safety Report 14607505 (Version 1)
Quarter: 2018Q1

REPORT INFORMATION
  Report Type: Spontaneous
  Country: ES (occurrence: ES)
  Receive Date: 20180307
  Receipt Date: 20180307
  Transmission Date: 20180509
  Serious: Yes (Other)
  Sender: FDA-Public Use
  Company Number: ES-ELI_LILLY_AND_COMPANY-ES201802011578

PATIENT
  Age: 86 Year
  Sex: Female

DRUGS (4)
  1. SINTROM [Concomitant]
     Active Substance: ACENOCOUMAROL
     Indication: DIABETES MELLITUS
  2. SINTROM [Concomitant]
     Active Substance: ACENOCOUMAROL
     Indication: DEPRESSION
  3. SINTROM [Concomitant]
     Active Substance: ACENOCOUMAROL
     Indication: BLOOD CHOLESTEROL
  4. FORSTEO [Suspect]
     Active Substance: TERIPARATIDE
     Indication: OSTEOPOROSIS
     Dosage: UNK UNK, UNKNOWN
     Route: 065
     Dates: start: 20180222

REACTIONS (2)
  - Fall [Unknown]
  - Gait inability [Unknown]

NARRATIVE: CASE EVENT DATE: 20180222
